FAERS Safety Report 4393132-8 (Version None)
Quarter: 2004Q3

REPORT INFORMATION
  Report Type: 
  Country: None (occurrence: None)
  Receive Date: 20040702
  Receipt Date: 20040624
  Transmission Date: 20050211
  Serious: Yes (Hospitalization)
  Sender: FDA-Public Use
  Company Number: DE-JNJFOC-20040201562

PATIENT
  Age: 51 Year
  Sex: Male
  Weight: 135 kg

DRUGS (3)
  1. RISPERDAL CONSTA [Suspect]
     Indication: SCHIZOPHRENIA
     Dosage: SEE IMAGE
     Route: 030
     Dates: start: 20030101, end: 20031201
  2. RISPERDAL CONSTA [Suspect]
     Indication: SCHIZOPHRENIA
     Dosage: SEE IMAGE
     Route: 030
     Dates: start: 20031212, end: 20040608
  3. ZOLOFT [Concomitant]

REACTIONS (3)
  - FAT NECROSIS [None]
  - INJECTION SITE MASS [None]
  - SUBCUTANEOUS ABSCESS [None]
